FAERS Safety Report 4374391-4 (Version None)
Quarter: 2004Q2

REPORT INFORMATION
  Report Type: 
  Country: None (occurrence: None)
  Receive Date: 20040608
  Receipt Date: 20040608
  Transmission Date: 20050107
  Serious: Yes (Death)
  Sender: FDA-Public Use
  Company Number: None

PATIENT
  Age: 9 Month
  Sex: Male
  Weight: 8.1647 kg

DRUGS (3)
  1. CARBOFED DM ROPS 0.23MG/ML WALGREENS [Suspect]
     Indication: BRONCHITIS
     Dosage: 0.75ML ORAL
     Route: 048
  2. CARBOFED DM ROPS 0.58NG/ML WALGREENS [Suspect]
  3. CARBOFED DM ROPS 3.4MG/ML WALGREENS [Suspect]

REACTIONS (1)
  - SUDDEN INFANT DEATH SYNDROME [None]
